FAERS Safety Report 18862114 (Version 2)
Quarter: 2021Q2

REPORT INFORMATION
  Report Type: Report from Study
  Country: CA (occurrence: CA)
  Receive Date: 20210209
  Receipt Date: 20210409
  Transmission Date: 20210717
  Serious: Yes (Other)
  Sender: FDA-Public Use
  Company Number: CA-JNJFOC-20201221583

PATIENT
  Age: 32 Year
  Sex: Female
  Weight: 126 kg

DRUGS (13)
  1. SIMPONI [Suspect]
     Active Substance: GOLIMUMAB
     Indication: RHEUMATOID ARTHRITIS
     Route: 042
     Dates: start: 20141126
  2. HYDROXYQUINOLINE [Concomitant]
     Active Substance: OXYQUINOLINE
     Route: 048
  3. TERBINAFINE. [Concomitant]
     Active Substance: TERBINAFINE
  4. PREGABALIN. [Concomitant]
     Active Substance: PREGABALIN
  5. SULFASALAZINE. [Concomitant]
     Active Substance: SULFASALAZINE
     Route: 048
  6. FOLIC ACID. [Concomitant]
     Active Substance: FOLIC ACID
     Route: 048
  7. FERROUS GLUCONATE [Concomitant]
     Active Substance: FERROUS GLUCONATE
  8. PREGABALIN. [Concomitant]
     Active Substance: PREGABALIN
     Route: 048
  9. METFORMIN [Concomitant]
     Active Substance: METFORMIN HYDROCHLORIDE
     Route: 048
  10. DICLOFENAC [Concomitant]
     Active Substance: DICLOFENAC
     Route: 048
  11. PRAMIPEXOLE. [Concomitant]
     Active Substance: PRAMIPEXOLE
     Route: 048
  12. LANSOPRAZOLE. [Concomitant]
     Active Substance: LANSOPRAZOLE
     Route: 048
  13. PREGABALIN. [Concomitant]
     Active Substance: PREGABALIN

REACTIONS (3)
  - Therapeutic product effect decreased [Not Recovered/Not Resolved]
  - Onychomycosis [Unknown]
  - Metabolic surgery [Unknown]
